FAERS Safety Report 9298471 (Version 3)
Quarter: 2013Q4

REPORT INFORMATION
  Report Type: Spontaneous
  Country: US (occurrence: US)
  Receive Date: 20130520
  Receipt Date: 20131127
  Transmission Date: 20140711
  Serious: Yes (Hospitalization)
  Sender: FDA-Public Use
  Company Number: US-B.I. PHARMACEUTICALS,INC./RIDGEFIELD-2013-BI-13603BP

PATIENT
  Age: 83 Year
  Sex: Male
  Weight: 72.57 kg

DRUGS (14)
  1. PRADAXA [Suspect]
     Indication: ANTICOAGULANT THERAPY
     Dosage: 300 MG
     Route: 048
     Dates: start: 20110324, end: 20110801
  2. ADVAIR DISKUS [Concomitant]
     Route: 055
  3. SPIRIVA HANDIHALER [Concomitant]
     Dosage: 18 MCG
     Route: 055
  4. PROVENTIL [Concomitant]
     Route: 055
  5. LIPITOR [Concomitant]
     Dosage: 40 MG
     Route: 048
  6. NEXIUM [Concomitant]
     Dosage: 40 MG
     Route: 048
  7. NEURONTIN [Concomitant]
     Indication: POST HERPETIC NEURALGIA
     Dosage: 2400 MG
     Route: 048
  8. COREG [Concomitant]
     Dosage: 6.25 MG
     Route: 048
  9. KLOR-CON [Concomitant]
     Dosage: 20 MEQ
     Route: 048
  10. WELLBUTRIN [Concomitant]
     Indication: DEPRESSION
     Dosage: 300 MG
     Route: 048
  11. TEGRETOL XR [Concomitant]
     Indication: POST HERPETIC NEURALGIA
     Dosage: 200 MG
     Route: 048
  12. SYNTHROID [Concomitant]
     Dosage: 75 MCG
     Route: 048
  13. LASIX [Concomitant]
     Dosage: 80 MG
     Route: 048
  14. ALTACE [Concomitant]
     Dosage: 2.5 MG
     Route: 048

REACTIONS (2)
  - Lower gastrointestinal haemorrhage [Recovered/Resolved]
  - Anaemia [Unknown]
